FAERS Safety Report 25905806 (Version 1)
Quarter: 2025Q4

REPORT INFORMATION
  Report Type: Spontaneous
  Country: US (occurrence: None)
  Receive Date: 20251009
  Receipt Date: 20251009
  Transmission Date: 20260118
  Serious: Yes (Death)
  Sender: FDA-CTU
  Company Number: None

PATIENT
  Age: 77 Year
  Sex: Male
  Weight: 88.0 kg

DRUGS (4)
  1. EMGALITY [Suspect]
     Active Substance: GALCANEZUMAB-GNLM
     Indication: Migraine
     Dosage: 120MG/ML MONTHLY SUBCUTANEOUS
     Route: 058
     Dates: start: 20231211, end: 20250905
  2. CARBIDOPA\LEVODOPA [Concomitant]
     Active Substance: CARBIDOPA\LEVODOPA
  3. EMGALITY [Concomitant]
     Active Substance: GALCANEZUMAB-GNLM
  4. UBRELVY [Concomitant]
     Active Substance: UBROGEPANT

REACTIONS (1)
  - Death [None]

NARRATIVE: CASE EVENT DATE: 20250905
